FAERS Safety Report 13537832 (Version 5)
Quarter: 2017Q3

REPORT INFORMATION
  Report Type: Report from Study
  Country: CH (occurrence: CH)
  Receive Date: 20170511
  Receipt Date: 20170719
  Transmission Date: 20171127
  Serious: Yes (Hospitalization)
  Sender: FDA-Public Use
  Company Number: CH-EISAI MEDICAL RESEARCH-EC-2017-027417

PATIENT
  Age: 75 Year
  Sex: Female

DRUGS (3)
  1. ERIBULIN [Suspect]
     Active Substance: ERIBULIN
     Dosage: UNKNOWN
     Route: 041
     Dates: start: 20170609, end: 20170705
  2. PARACETAMOL [Concomitant]
     Active Substance: ACETAMINOPHEN
     Route: 048
     Dates: start: 20161014, end: 20170504
  3. ERIBULIN [Suspect]
     Active Substance: ERIBULIN
     Indication: BREAST CANCER
     Route: 041
     Dates: start: 20170427, end: 20170427

REACTIONS (1)
  - Hepatobiliary disease [Recovered/Resolved with Sequelae]

NARRATIVE: CASE EVENT DATE: 20170505
